FAERS Safety Report 17060952 (Version 1)
Quarter: 2019Q4

REPORT INFORMATION
  Report Type: Report from Study
  Country: GB (occurrence: GB)
  Receive Date: 20191121
  Receipt Date: 20191121
  Transmission Date: 20200122
  Serious: Yes (Hospitalization)
  Sender: FDA-Public Use
  Company Number: NVSC2019GB042223

PATIENT
  Sex: Male

DRUGS (2)
  1. COSENTYX [Suspect]
     Active Substance: SECUKINUMAB
     Indication: PSORIATIC ARTHROPATHY
  2. COSENTYX [Suspect]
     Active Substance: SECUKINUMAB
     Indication: PSORIASIS
     Dosage: 300 MG (ON WEEKS 0, 1, 2, 3 AND 4 FOLLOWED BY ONCE MONTHLY) QW
     Route: 058
     Dates: start: 2019

REACTIONS (3)
  - Arthralgia [Unknown]
  - Malaise [Unknown]
  - Pruritus [Unknown]
